FAERS Safety Report 7942514-3 (Version None)
Quarter: 2011Q4

REPORT INFORMATION
  Report Type: 
  Country: None (occurrence: None)
  Receive Date: 20111128
  Receipt Date: 20111118
  Transmission Date: 20120403
  Serious: Yes (Hospitalization)
  Sender: FDA-Public Use
  Company Number: JP-GLAXOSMITHKLINE-B0760030A

PATIENT
  Sex: Male

DRUGS (9)
  1. LAMICTAL [Suspect]
     Dosage: 100MG PER DAY
     Route: 048
     Dates: start: 20111024, end: 20111101
  2. LAMICTAL [Suspect]
     Dosage: 50MG PER DAY
     Route: 048
     Dates: start: 20111010, end: 20111023
  3. ZYPREXA [Concomitant]
     Route: 048
  4. LITHIUM CARBONATE [Concomitant]
     Route: 048
  5. UNKNOWN [Concomitant]
     Route: 048
  6. LAMICTAL [Suspect]
     Indication: BIPOLAR DISORDER
     Dosage: 25MG PER DAY
     Route: 048
     Dates: start: 20110926, end: 20111009
  7. CLONAZEPAM [Concomitant]
     Route: 048
  8. MUCODYNE [Concomitant]
     Route: 048
  9. GASMOTIN [Concomitant]
     Route: 048

REACTIONS (3)
  - STEVENS-JOHNSON SYNDROME [None]
  - HYPERTHERMIA [None]
  - SKIN DISORDER [None]
